FAERS Safety Report 7150666-0 (Version None)
Quarter: 2010Q4

REPORT INFORMATION
  Report Type: 
  Country: None (occurrence: None)
  Receive Date: 20101210
  Receipt Date: 20101202
  Transmission Date: 20110411
  Serious: Yes (Hospitalization)
  Sender: FDA-Public Use
  Company Number: CA-PFIZER INC-2010163950

PATIENT
  Age: 70 Year
  Sex: Female
  Weight: 81.633 kg

DRUGS (2)
  1. CELEBREX [Suspect]
     Indication: SCIATICA
     Dosage: 200 MG, 1X/DAY
     Route: 048
     Dates: start: 20101101, end: 20101115
  2. GABAPENTIN [Concomitant]
     Indication: PAIN
     Dosage: 300 MG, 1X/DAY
     Route: 048
     Dates: start: 20101101

REACTIONS (1)
  - HAEMORRHAGE [None]
